FAERS Safety Report 7735948-3 (Version None)
Quarter: 2011Q3

REPORT INFORMATION
  Report Type: 
  Country: None (occurrence: None)
  Receive Date: 20110817
  Receipt Date: 20100611
  Transmission Date: 20111222
  Serious: No
  Sender: FDA-Public Use
  Company Number: 20097508

PATIENT
  Age: 28 Year
  Sex: Male

DRUGS (2)
  1. HYDROMORPHONE HCL [Concomitant]
  2. LIORESAL [Suspect]
     Indication: MUSCLE SPASTICITY
     Dosage: UNK MCG/ DAILY, INTRATHECAL
     Route: 037

REACTIONS (3)
  - PAIN IN EXTREMITY [None]
  - THERAPEUTIC RESPONSE DECREASED [None]
  - BACK PAIN [None]
